FAERS Safety Report 9167897 (Version 1)
Quarter: 2013Q1

REPORT INFORMATION
  Report Type: Spontaneous
  Country: AU (occurrence: AU)
  Receive Date: 20130318
  Receipt Date: 20130318
  Transmission Date: 20140127
  Serious: Yes (Other)
  Sender: FDA-Public Use
  Company Number: PHHY2013AU025623

PATIENT
  Sex: Female

DRUGS (1)
  1. FAMVIR [Suspect]
     Indication: ORAL CANDIDIASIS
     Dosage: 250 MG, TID
     Route: 048

REACTIONS (3)
  - Abasia [Unknown]
  - Limb discomfort [Unknown]
  - Rash generalised [Unknown]
